FAERS Safety Report 5718565-6 (Version None)
Quarter: 2008Q2

REPORT INFORMATION
  Report Type: 
  Country: None (occurrence: None)
  Receive Date: 20080425
  Receipt Date: 20080414
  Transmission Date: 20081010
  Serious: Yes (Life-Threatening, Hospitalization)
  Sender: FDA-Public Use
  Company Number: FR-PFIZER INC-2008011773

PATIENT
  Sex: Female

DRUGS (5)
  1. DEPO-MEDROL [Suspect]
     Route: 037
     Dates: start: 20070905, end: 20070905
  2. CYTARABINE [Suspect]
     Indication: ACUTE MYELOID LEUKAEMIA
  3. CERUBIDIN [Suspect]
     Indication: ACUTE MYELOID LEUKAEMIA
     Route: 042
  4. METHOTREXATE [Suspect]
     Indication: ACUTE MYELOID LEUKAEMIA
     Route: 037
     Dates: start: 20070905, end: 20070905
  5. HYDROXYCARBAMIDE [Suspect]
     Dosage: TEXT:4DF
     Route: 048
     Dates: start: 20070830, end: 20070831

REACTIONS (4)
  - BLOOD AMYLASE INCREASED [None]
  - LIPASE INCREASED [None]
  - PANCREATITIS ACUTE [None]
  - PERITONEAL EFFUSION [None]
